FAERS Safety Report 5888910-X (Version None)
Quarter: 2008Q3

REPORT INFORMATION
  Report Type: 
  Country: None (occurrence: None)
  Receive Date: 20080919
  Receipt Date: 20080913
  Transmission Date: 20090109
  Serious: Yes (Other)
  Sender: FDA-Public Use
  Company Number: PHHY2008CA21340

PATIENT

DRUGS (3)
  1. DIOVAN [Suspect]
     Dosage: 80 MG, UNK
     Route: 048
  2. CALCIUM CHANNEL BLOCKERS [Concomitant]
     Dosage: UNK
  3. DIURETICS [Concomitant]
     Dosage: UNK

REACTIONS (1)
  - MICROALBUMINURIA [None]
